FAERS Safety Report 6464298-0 (Version None)
Quarter: 2009Q4

REPORT INFORMATION
  Report Type: 
  Country: None (occurrence: None)
  Receive Date: 20091201
  Receipt Date: 20081103
  Transmission Date: 20100525
  Serious: No
  Sender: FDA-Public Use
  Company Number: US-AMGEN-KDL317203

PATIENT
  Sex: Male

DRUGS (2)
  1. ENBREL [Suspect]
     Indication: RHEUMATOID ARTHRITIS
     Route: 058
     Dates: start: 20020101
  2. SULFASALAZINE [Concomitant]

REACTIONS (2)
  - GASTROOESOPHAGEAL REFLUX DISEASE [None]
  - OXYGEN SATURATION DECREASED [None]
